FAERS Safety Report 21138136 (Version 2)
Quarter: 2022Q4

REPORT INFORMATION
  Report Type: Spontaneous
  Country: US (occurrence: US)
  Receive Date: 20220727
  Receipt Date: 20221207
  Transmission Date: 20230113
  Serious: No
  Sender: FDA-Public Use
  Company Number: US-BAYER-2022A104789

PATIENT
  Age: 74 Year
  Sex: Female

DRUGS (1)
  1. ESTRADIOL [Suspect]
     Active Substance: ESTRADIOL
     Dosage: ONCE A WEEK

REACTIONS (7)
  - Drug withdrawal syndrome [None]
  - Chills [None]
  - Hyperhidrosis [None]
  - Adverse drug reaction [None]
  - Product quality issue [None]
  - Device adhesion issue [None]
  - Product dose omission issue [None]
